FAERS Safety Report 18640106 (Version 3)
Quarter: 2021Q2

REPORT INFORMATION
  Report Type: Spontaneous
  Country: JP (occurrence: JP)
  Receive Date: 20201220
  Receipt Date: 20210503
  Transmission Date: 20210717
  Serious: Yes (Hospitalization, Other)
  Sender: FDA-Public Use
  Company Number: JP-JNJFOC-20201229654

PATIENT
  Age: 60 Year
  Sex: Male

DRUGS (2)
  1. ACETYLSALICYLIC ACID [Suspect]
     Active Substance: ASPIRIN
     Indication: ACUTE CORONARY SYNDROME
     Dosage: 100 MG
     Route: 048
     Dates: start: 20031116, end: 20200129
  2. XARELTO [Suspect]
     Active Substance: RIVAROXABAN
     Indication: ATRIAL FIBRILLATION
     Dosage: 15 MG
     Route: 048
     Dates: start: 20180903

REACTIONS (8)
  - Cold sweat [Recovered/Resolved]
  - Device related infection [Recovered/Resolved]
  - Contraindicated product administered [Unknown]
  - Anaemia [Recovered/Resolved]
  - Aortic valve stenosis [Recovered/Resolved]
  - Acute myocardial infarction [Recovered/Resolved]
  - Labelled drug-disease interaction medication error [Unknown]
  - Nausea [Recovered/Resolved]

NARRATIVE: CASE EVENT DATE: 20200117
